FAERS Safety Report 7199762-2 (Version None)
Quarter: 2010Q4

REPORT INFORMATION
  Report Type: 
  Country: None (occurrence: None)
  Receive Date: 20101228
  Receipt Date: 20101223
  Transmission Date: 20110411
  Serious: Yes (Life-Threatening, Hospitalization)
  Sender: FDA-Public Use
  Company Number: GB-ROCHE-606142

PATIENT
  Sex: Female
  Weight: 3.1 kg

DRUGS (1)
  1. CEFTRIAXONE SODIUM [Suspect]
     Indication: CHORIOAMNIONITIS
     Route: 064

REACTIONS (4)
  - CONVULSION NEONATAL [None]
  - HYPOXIC-ISCHAEMIC ENCEPHALOPATHY [None]
  - INFANTILE APNOEIC ATTACK [None]
  - TACHYCARDIA FOETAL [None]
